FAERS Safety Report 6689643-2 (Version None)
Quarter: 2010Q2

REPORT INFORMATION
  Report Type: 
  Country: None (occurrence: None)
  Receive Date: 20100421
  Receipt Date: 20100414
  Transmission Date: 20101027
  Serious: Yes (Other)
  Sender: FDA-Public Use
  Company Number: US-BIOGENIDEC-2010BI012473

PATIENT
  Age: 34 Year
  Sex: Female
  Weight: 65 kg

DRUGS (2)
  1. AVONEX [Suspect]
     Indication: MULTIPLE SCLEROSIS
     Route: 030
     Dates: start: 20100209
  2. DILANTIN [Concomitant]
     Indication: GRAND MAL CONVULSION

REACTIONS (1)
  - GRAND MAL CONVULSION [None]
